FAERS Safety Report 7491660-X (Version None)
Quarter: 2011Q2

REPORT INFORMATION
  Report Type: 
  Country: None (occurrence: None)
  Receive Date: 20110518
  Receipt Date: 20110518
  Transmission Date: 20111010
  Serious: Yes (Hospitalization)
  Sender: FDA-Public Use
  Company Number: None

PATIENT
  Sex: Male
  Weight: 81.6475 kg

DRUGS (11)
  1. COREG [Concomitant]
  2. NORVASC [Concomitant]
  3. IRON PILLS [Concomitant]
  4. LOVASTATIN [Concomitant]
  5. GLYBURIDE [Concomitant]
  6. ASPIRIN [Concomitant]
  7. SPIRIVA [Suspect]
     Dosage: 1 INHALATION DAILY INHAL
     Route: 055
  8. COUMADIN [Concomitant]
  9. HYDRALAZINE HCL [Concomitant]
  10. ADVAIR/DISCUS 50/250 [Concomitant]
  11. SENIOR MULTIVITAMINS [Concomitant]

REACTIONS (2)
  - OEDEMA PERIPHERAL [None]
  - UNEVALUABLE EVENT [None]
